FAERS Safety Report 8468074 (Version 4)
Quarter: 2012Q4

REPORT INFORMATION
  Report Type: 
  Country: US (occurrence: US)
  Receive Date: 20120320
  Receipt Date: 20121105
  Transmission Date: 20130627
  Serious: Yes (Other)
  Sender: FDA-Public Use
  Company Number: US-MERCK-1203USA02001

PATIENT

DRUGS (19)
  1. FOSAMAX [Suspect]
     Indication: OSTEOPENIA
     Dosage: 70 mg, qw
     Route: 048
     Dates: start: 200301, end: 20100914
  2. FOSAMAX [Suspect]
     Indication: OSTEOPOROSIS
  3. ZYRTEC [Concomitant]
     Indication: HYPERSENSITIVITY
  4. NASAL SPRAY [Concomitant]
     Indication: HYPERSENSITIVITY
  5. NAPROXEN [Concomitant]
     Indication: SPINAL COLUMN INJURY
     Dosage: UNK
     Dates: start: 1986
  6. NAPROXEN [Concomitant]
     Indication: FIBROMYALGIA
  7. CELEBREX [Concomitant]
     Indication: SPINAL COLUMN INJURY
     Dosage: 200-400 mg qd
     Dates: start: 1986
  8. CELEBREX [Concomitant]
     Indication: FIBROMYALGIA
  9. EFFEXOR XR [Concomitant]
     Indication: FIBROMYALGIA
     Dosage: 37.5-75 mg, qd
     Dates: start: 20041130
  10. LEXAPRO [Concomitant]
     Indication: FIBROMYALGIA
     Dosage: 20 mg, UNK
  11. PAMELOR [Concomitant]
     Indication: FIBROMYALGIA
     Dosage: 25 mg, hs
     Dates: start: 20061031
  12. ELAVIL (AMITRIPTYLINE HYDROCHLORIDE) [Concomitant]
     Indication: FIBROMYALGIA
  13. LYRICA [Concomitant]
     Indication: FIBROMYALGIA
     Dosage: UNK
     Dates: start: 20090512
  14. CALCIUM (UNSPECIFIED) [Concomitant]
     Indication: OSTEOPENIA
  15. CALCIUM (UNSPECIFIED) [Concomitant]
     Indication: OSTEOPOROSIS
  16. VITAMIN D (UNSPECIFIED) [Concomitant]
     Indication: OSTEOPENIA
  17. VITAMIN D (UNSPECIFIED) [Concomitant]
     Indication: OSTEOPOROSIS
  18. VOLTAREN EMULGEL [Concomitant]
     Indication: TENDONITIS
  19. VOLTAREN EMULGEL [Concomitant]
     Indication: EPICONDYLITIS

REACTIONS (36)
  - Arthropathy [Unknown]
  - Tendon sheath incision [Unknown]
  - Appendicectomy [Unknown]
  - Carpal tunnel decompression [Unknown]
  - Breast cyst excision [Unknown]
  - Femur fracture [Recovered/Resolved]
  - Endodontic procedure [Unknown]
  - Rib fracture [Unknown]
  - Tendon sheath incision [Unknown]
  - Low turnover osteopathy [Unknown]
  - Hypertension [Unknown]
  - Chest pain [Unknown]
  - Arthropathy [Unknown]
  - Biopsy breast [Unknown]
  - Hypercholesterolaemia [Unknown]
  - Osteoarthritis [Unknown]
  - Intervertebral disc degeneration [Unknown]
  - Cervicobrachial syndrome [Unknown]
  - Carpal tunnel syndrome [Unknown]
  - Trigger finger [Unknown]
  - Breast cyst [Unknown]
  - Breast necrosis [Unknown]
  - Arthropathy [Unknown]
  - Exostosis [Unknown]
  - Osteoporosis [Unknown]
  - Sleep disorder [Recovering/Resolving]
  - Somnolence [Unknown]
  - Rotator cuff syndrome [Recovering/Resolving]
  - Bursitis [Recovered/Resolved]
  - Bursitis [Unknown]
  - Alopecia [Unknown]
  - Musculoskeletal pain [Unknown]
  - Gastrooesophageal reflux disease [Unknown]
  - Muscle spasms [Unknown]
  - Drug ineffective [Unknown]
  - Drug ineffective [Unknown]
